FAERS Safety Report 6292264-7 (Version None)
Quarter: 2009Q3

REPORT INFORMATION
  Report Type: 
  Country: None (occurrence: None)
  Receive Date: 20090730
  Receipt Date: 20090730
  Transmission Date: 20100115
  Serious: Yes (Other)
  Sender: FDA-Public Use
  Company Number: None

PATIENT
  Sex: Female
  Weight: 73.0291 kg

DRUGS (1)
  1. COLAZAL [Suspect]
     Indication: CROHN'S DISEASE
     Dosage: 750 MG 3 PO TID ORAL
     Route: 048
     Dates: start: 20090501, end: 20090526

REACTIONS (2)
  - ABDOMINAL PAIN [None]
  - PRODUCT SUBSTITUTION ISSUE [None]
